FAERS Safety Report 5715512-8 (Version None)
Quarter: 2008Q2

REPORT INFORMATION
  Report Type: 
  Country: None (occurrence: None)
  Receive Date: 20080422
  Receipt Date: 20080410
  Transmission Date: 20081010
  Serious: Yes (Hospitalization)
  Sender: FDA-Public Use
  Company Number: 188700

PATIENT
  Age: 40 Year
  Sex: Female

DRUGS (11)
  1. AVONEX [Suspect]
     Indication: MULTIPLE SCLEROSIS
     Dosage: 30 UG; QW; IM
     Route: 030
     Dates: start: 19960901
  2. OXYCONTIN [Concomitant]
  3. NEXIUM [Concomitant]
  4. NEURONTIN [Concomitant]
  5. PROZAC [Concomitant]
  6. ATIVAN [Concomitant]
  7. ZANAFLEX [Concomitant]
  8. BECONASE [Concomitant]
  9. ULTRAM [Concomitant]
  10. SOLU-MEDROL [Concomitant]
  11. NAPRELAN [Concomitant]

REACTIONS (2)
  - EXOSTOSIS [None]
  - SPINAL OSTEOARTHRITIS [None]
